FAERS Safety Report 19038974 (Version 3)
Quarter: 2021Q2

REPORT INFORMATION
  Report Type: Spontaneous
  Country: JP (occurrence: JP)
  Receive Date: 20210322
  Receipt Date: 20210414
  Transmission Date: 20210717
  Serious: Yes (Other)
  Sender: FDA-Public Use
  Company Number: JP-GLAXOSMITHKLINE-JP2021062405

PATIENT
  Age: 49 Year
  Sex: Male

DRUGS (2)
  1. ARIPIPRAZOLE TABLET [Concomitant]
     Active Substance: ARIPIPRAZOLE
     Indication: MENTAL DISORDER
     Dosage: 6 MG, QD
  2. SERETIDE [Suspect]
     Active Substance: FLUTICASONE PROPIONATE\SALMETEROL XINAFOATE
     Indication: ASTHMA
     Dosage: 1 INHALATION PER DOSE, BID
     Route: 055

REACTIONS (3)
  - Chest pain [Recovered/Resolved]
  - Angina pectoris [Recovering/Resolving]
  - Product complaint [Unknown]
